FAERS Safety Report 7987416-1 (Version None)
Quarter: 2011Q4

REPORT INFORMATION
  Report Type: 
  Country: None (occurrence: None)
  Receive Date: 20111216
  Receipt Date: 20110406
  Transmission Date: 20120403
  Serious: No
  Sender: FDA-Public Use
  Company Number: US-BRISTOL-MYERS SQUIBB COMPANY-15659600

PATIENT
  Age: 60 Year
  Sex: Male

DRUGS (4)
  1. MIRTAZAPINE [Suspect]
     Indication: ANXIETY
     Dosage: MAXIMUM DOSE
  2. LORAZEPAM [Suspect]
     Indication: ANXIETY
  3. LEXAPRO [Suspect]
     Indication: ANXIETY
     Dosage: MAXIMUM DOSE
  4. ABILIFY [Suspect]
     Indication: MAJOR DEPRESSION
     Dosage: THEN INCREASED TO 5MG AND FINALLY INCREASED TO 7.5MG

REACTIONS (1)
  - WEIGHT INCREASED [None]
